FAERS Safety Report 18652749 (Version 2)
Quarter: 2021Q1

REPORT INFORMATION
  Report Type: Spontaneous
  Country: US (occurrence: US)
  Receive Date: 20201222
  Receipt Date: 20210112
  Transmission Date: 20210419
  Serious: Yes (Life-Threatening, Other)
  Sender: FDA-Public Use
  Company Number: US-BAXTER-2020BAX026022

PATIENT
  Age: 66 Year
  Sex: Female

DRUGS (1)
  1. PRISMASOL BGK4/2.5 [Suspect]
     Active Substance: ANHYDROUS DEXTROSE\CALCIUM CHLORIDE\LACTIC ACID\MAGNESIUM CHLORIDE\POTASSIUM CHLORIDE\SODIUM BICARBONATE\SODIUM CHLORIDE
     Indication: ACUTE KIDNEY INJURY
     Route: 010
     Dates: start: 20200928, end: 20201104

REACTIONS (4)
  - Critical illness [Unknown]
  - Device issue [Unknown]
  - Anaemia [Recovered/Resolved]
  - Haemorrhage [Recovered/Resolved]

NARRATIVE: CASE EVENT DATE: 20200930
